FAERS Safety Report 7962064-8 (Version None)
Quarter: 2011Q4

REPORT INFORMATION
  Report Type: 
  Country: None (occurrence: None)
  Receive Date: 20111207
  Receipt Date: 20111129
  Transmission Date: 20120403
  Serious: Yes (Other)
  Sender: FDA-Public Use
  Company Number: US-JNJFOC-20111200606

PATIENT
  Age: 28 Year
  Sex: Male
  Weight: 117.94 kg

DRUGS (2)
  1. INVEGA SUSTENNA [Suspect]
     Indication: AGGRESSION
     Route: 030
     Dates: start: 20100101, end: 20110101
  2. INVEGA [Suspect]
     Indication: AGGRESSION
     Route: 048
     Dates: start: 20110101

REACTIONS (4)
  - NERVOUSNESS [None]
  - AGGRESSION [None]
  - INJECTION SITE ANAESTHESIA [None]
  - HYPERSOMNIA [None]
